FAERS Safety Report 14273988 (Version 1)
Quarter: 2017Q4

REPORT INFORMATION
  Report Type: Spontaneous
  Country: US (occurrence: US)
  Receive Date: 20171212
  Receipt Date: 20171212
  Transmission Date: 20180321
  Serious: Yes (Hospitalization, Other)
  Sender: FDA-Public Use
  Company Number: US-APOTEX-2017AP022209

PATIENT
  Age: 51 Year
  Sex: Male

DRUGS (3)
  1. ONDANSETRON INJECTION USP [Suspect]
     Active Substance: ONDANSETRON
     Indication: VOMITING
     Dosage: AT 01:41
     Route: 042
  2. ONDANSETRON INJECTION USP [Suspect]
     Active Substance: ONDANSETRON
     Dosage: AT 10:0
     Route: 042
  3. ONDANSETRON INJECTION USP [Suspect]
     Active Substance: ONDANSETRON
     Indication: NAUSEA
     Dosage: AT 00:23
     Route: 042

REACTIONS (1)
  - Torsade de pointes [Recovered/Resolved]
